FAERS Safety Report 20168591 (Version 1)
Quarter: 2021Q4

REPORT INFORMATION
  Report Type: Spontaneous
  Country: US (occurrence: US)
  Receive Date: 20211210
  Receipt Date: 20211210
  Transmission Date: 20220303
  Serious: Yes (Hospitalization)
  Sender: FDA-Public Use
  Company Number: US-JNJFOC-20211203625

PATIENT
  Age: 34 Year
  Sex: Male
  Weight: 84 kg

DRUGS (1)
  1. ACETAMINOPHEN [Suspect]
     Active Substance: ACETAMINOPHEN
     Indication: Suicide attempt
     Dosage: TOOK SINGLE DOSE 50000 MG OF ACETAMINOPHEN ON 18-DEC-2002 AT 20:30
     Route: 048
     Dates: start: 20021218, end: 20021218

REACTIONS (5)
  - Suicide attempt [Recovered/Resolved]
  - Atelectasis [Recovered/Resolved]
  - Respiratory failure [Recovered/Resolved]
  - Acute hepatic failure [Recovered/Resolved]
  - Intentional overdose [Recovered/Resolved]
